FAERS Safety Report 6120103-3 (Version None)
Quarter: 2009Q1

REPORT INFORMATION
  Report Type: 
  Country: None (occurrence: None)
  Receive Date: 20090312
  Receipt Date: 20080109
  Transmission Date: 20090719
  Serious: No
  Sender: FDA-Public Use
  Company Number: WAES 0801USA04045

PATIENT
  Sex: Female

DRUGS (1)
  1. HYZAAR [Suspect]
     Dosage: 100-12.5 MG/DAILY/PO; 50-12.5 MG/DAILY/PO
     Route: 048

REACTIONS (1)
  - DRUG EFFECT DECREASED [None]
